FAERS Safety Report 5014961-3 (Version None)
Quarter: 2006Q2

REPORT INFORMATION
  Report Type: 
  Country: None (occurrence: None)
  Receive Date: 20060425
  Receipt Date: 20060125
  Transmission Date: 20061013
  Serious: No
  Sender: FDA-Public Use
  Company Number: 221488

PATIENT
  Age: 42 Year
  Sex: Female

DRUGS (5)
  1. XOLAIR [Suspect]
     Indication: ASTHMA
     Dosage: UNK, 1/MONTH, UNK
     Route: 065
     Dates: start: 20040101
  2. PREDNISONE TAB [Concomitant]
  3. ADVAIR DISKUS 100/50 [Concomitant]
  4. ALBUTEROL (ALBUTEROL/ALBUTEROL SULFATE) [Concomitant]
  5. PREVACID [Concomitant]

REACTIONS (1)
  - ASTHMA [None]
